FAERS Safety Report 6492528-8 (Version None)
Quarter: 2009Q4

REPORT INFORMATION
  Report Type: 
  Country: None (occurrence: None)
  Receive Date: 20091214
  Receipt Date: 20091209
  Transmission Date: 20100525
  Serious: Yes (Hospitalization)
  Sender: FDA-Public Use
  Company Number: US-ROCHE-673594

PATIENT
  Age: 4 Year
  Sex: Male

DRUGS (12)
  1. GRANISETRON HYDROCHLORIDE [Suspect]
     Route: 065
  2. SULFAMETHOXAZOLE AND TRIMETHOPRIM [Suspect]
     Route: 065
     Dates: end: 20090507
  3. DASATINIB [Suspect]
     Dosage: ON DAYS 15-28
     Route: 048
     Dates: start: 20090424, end: 20090507
  4. CYTARABINE [Suspect]
     Dosage: 16-30MG ON DAYS 15 AND 29
     Route: 037
     Dates: start: 20090424, end: 20090508
  5. DAUNORUBICIN HCL [Suspect]
     Dosage: ON DAYS 15 AND 22
     Route: 042
     Dates: start: 20090424, end: 20090501
  6. HYDROCORTISONE [Suspect]
     Dosage: 8-15 MG ON DAYS 15 AND 29
     Route: 037
     Dates: start: 20090424, end: 20090508
  7. METHOTREXATE [Suspect]
     Dosage: 8-15 MG ON DAYS 15 AND 29
     Route: 037
     Dates: start: 20090424, end: 20090508
  8. PREDNISONE [Suspect]
     Dosage: ON DAYS 15-28; 436.8 MG
     Route: 048
     Dates: start: 20090424, end: 20090507
  9. VINCRISTINE SULFATE [Suspect]
     Dosage: ON DAYS 15 AND 22; 1.92 MG
     Route: 042
     Dates: start: 20090424, end: 20090501
  10. GABAPENTIN [Suspect]
     Route: 065
  11. ONDANSETRON HCL [Suspect]
     Route: 065
  12. PIPERACILLIN AND TAZOBACTAM [Suspect]
     Route: 065

REACTIONS (4)
  - ALANINE AMINOTRANSFERASE INCREASED [None]
  - ASPARTATE AMINOTRANSFERASE INCREASED [None]
  - GAMMA-GLUTAMYLTRANSFERASE INCREASED [None]
  - LYMPHOPENIA [None]
